FAERS Safety Report 9114695 (Version 3)
Quarter: 2013Q2

REPORT INFORMATION
  Report Type: Spontaneous
  Country: US (occurrence: US)
  Receive Date: 20130208
  Receipt Date: 20130522
  Transmission Date: 20140414
  Serious: Yes (Hospitalization, Congenital Anomaly, Other)
  Sender: FDA-Public Use
  Company Number: US-PFIZER INC-2013046632

PATIENT
  Age: 16 Day
  Sex: Female

DRUGS (6)
  1. ZOLOFT [Suspect]
     Indication: DEPRESSION
     Dosage: UNK
     Route: 064
     Dates: start: 2002
  2. ZOLOFT [Suspect]
     Indication: ANXIETY
     Dosage: 100 MG, 1X/DAY
     Route: 064
     Dates: start: 200307
  3. NATATAB RX [Concomitant]
     Dosage: UNK, 1X/DAY
     Route: 064
     Dates: start: 200409, end: 200505
  4. VALTREX [Concomitant]
     Indication: HERPES VIRUS INFECTION
     Dosage: 500 MG, 1X/DAY
     Route: 064
     Dates: start: 200411, end: 200504
  5. PRENATAL VITAMINS [Concomitant]
     Dosage: UNK
     Route: 064
  6. ADVIL [Concomitant]
     Dosage: UNK
     Route: 064

REACTIONS (5)
  - Maternal exposure during pregnancy [Unknown]
  - Coarctation of the aorta [Unknown]
  - Patent ductus arteriosus [Unknown]
  - Mitral valve stenosis [Unknown]
  - Aortic stenosis [Unknown]
